FAERS Safety Report 17021367 (Version 1)
Quarter: 2019Q4

REPORT INFORMATION
  Report Type: Report from Study
  Country: DK (occurrence: DK)
  Receive Date: 20191112
  Receipt Date: 20191112
  Transmission Date: 20200122
  Serious: Yes (Other)
  Sender: FDA-Public Use
  Company Number: DK-MYLANLABS-2019M1108642

PATIENT
  Age: 47 Year
  Sex: Male

DRUGS (5)
  1. TERBINAFINE. [Suspect]
     Active Substance: TERBINAFINE
     Dosage: 2COURSES OF TERBINAFINE [TERBINAFINE HYDROCHLORIDE] ONCE APPLICATION ONLY
     Route: 061
  2. TERBINAFINE. [Suspect]
     Active Substance: TERBINAFINE
     Indication: TRICHOPHYTOSIS
     Dosage: 2 COURSES
     Route: 065
     Dates: start: 2015
  3. KETOCONAZOLE. [Concomitant]
     Active Substance: KETOCONAZOLE
     Indication: TRICHOPHYTOSIS
     Route: 061
  4. ITRACONAZOLE. [Concomitant]
     Active Substance: ITRACONAZOLE
     Indication: TRICHOPHYTOSIS
     Route: 065
  5. TERBINAFINE. [Suspect]
     Active Substance: TERBINAFINE
     Indication: TRICHOPHYTOSIS
     Dosage: TOTAL 9 COURSES INCLUDING 2COURSES OF TERBINAFINE ONCE APPLICATION ONLY; TOTAL DURATION 20 WEEKS
     Route: 061
     Dates: start: 2010

REACTIONS (1)
  - Pathogen resistance [Unknown]
